FAERS Safety Report 4748879-8 (Version None)
Quarter: 2005Q3

REPORT INFORMATION
  Report Type: 
  Country: None (occurrence: None)
  Receive Date: 20050817
  Receipt Date: 20050804
  Transmission Date: 20060218
  Serious: Yes (Hospitalization, Other)
  Sender: FDA-Public Use
  Company Number: 2005093454

PATIENT
  Age: 39 Year
  Sex: Male

DRUGS (4)
  1. GEODON [Suspect]
     Indication: BIPOLAR II DISORDER
     Dosage: 40 MG (40 MG, 1 IN 1 D), ORAL
     Route: 048
     Dates: start: 20050429, end: 20050608
  2. LAMICTAL [Suspect]
     Indication: BIPOLAR II DISORDER
     Dosage: 25 MG (25 MG, 1 IN 1 D), ORAL
     Route: 048
     Dates: start: 20050429, end: 20050606
  3. LEXAPRO [Concomitant]
  4. TYLENOL (PARAETAMOL) [Concomitant]

REACTIONS (16)
  - ALANINE AMINOTRANSFERASE INCREASED [None]
  - ASPARTATE AMINOTRANSFERASE INCREASED [None]
  - BLOOD ALKALINE PHOSPHATASE INCREASED [None]
  - BLOOD CREATINE PHOSPHOKINASE INCREASED [None]
  - DEPRESSION [None]
  - DIARRHOEA [None]
  - DRUG ERUPTION [None]
  - GLAUCOMA [None]
  - HEADACHE [None]
  - INSOMNIA [None]
  - NAUSEA [None]
  - OPTIC NEURITIS [None]
  - RASH GENERALISED [None]
  - RASH PRURITIC [None]
  - VOMITING [None]
  - WHITE BLOOD CELL COUNT INCREASED [None]
